FAERS Safety Report 4456993-X (Version None)
Quarter: 2004Q3

REPORT INFORMATION
  Report Type: 
  Country: None (occurrence: None)
  Receive Date: 20040923
  Receipt Date: 20040913
  Transmission Date: 20050211
  Serious: Yes (Other)
  Sender: FDA-Public Use
  Company Number: US-GLAXOSMITHKLINE-A0525593A

PATIENT
  Age: 28 Year
  Sex: Female
  Weight: 95.9 kg

DRUGS (2)
  1. ALOSETRON [Suspect]
     Indication: IRRITABLE BOWEL SYNDROME
     Dosage: .5MG PER DAY
     Route: 048
     Dates: start: 20040810, end: 20040909
  2. MIRCETTE [Concomitant]
     Indication: CONTRACEPTION
     Dates: start: 19950201

REACTIONS (7)
  - ABDOMINAL PAIN [None]
  - COLITIS ISCHAEMIC [None]
  - CONSTIPATION [None]
  - NAUSEA [None]
  - PROTEIN C INCREASED [None]
  - RECTAL HAEMORRHAGE [None]
  - VOMITING [None]
